FAERS Safety Report 5717508-9 (Version None)
Quarter: 2008Q2

REPORT INFORMATION
  Report Type: 
  Country: None (occurrence: None)
  Receive Date: 20080425
  Receipt Date: 20080422
  Transmission Date: 20081010
  Serious: Yes (Other)
  Sender: FDA-Public Use
  Company Number: GB-JNJFOC-20041204367

PATIENT
  Age: 63 Year
  Weight: 70 kg

DRUGS (2)
  1. IBUPROFEN [Suspect]
     Indication: OSTEOARTHRITIS
     Route: 048
  2. PREMPAK-C [Concomitant]
     Indication: HORMONE REPLACEMENT THERAPY
     Route: 048

REACTIONS (1)
  - VISUAL DISTURBANCE [None]
